FAERS Safety Report 19856468 (Version 3)
Quarter: 2021Q4

REPORT INFORMATION
  Report Type: Spontaneous
  Country: US (occurrence: US)
  Receive Date: 20210920
  Receipt Date: 20211102
  Transmission Date: 20220303
  Serious: No
  Sender: FDA-Public Use
  Company Number: US-CELGENE-USA-20210902483

PATIENT
  Age: 64 Year
  Sex: Male

DRUGS (2)
  1. ZEPOSIA [Suspect]
     Active Substance: OZANIMOD HYDROCHLORIDE
     Indication: Colitis ulcerative
     Dosage: .92 MILLIGRAM
     Route: 048
     Dates: start: 20210802
  2. CANNABIS SATIVA SUBSP. INDICA TOP [Concomitant]
     Active Substance: CANNABIS SATIVA SUBSP. INDICA TOP
     Indication: Arthritis
     Route: 065

REACTIONS (6)
  - Dizziness [Recovering/Resolving]
  - Bowel movement irregularity [Unknown]
  - Nasopharyngitis [Unknown]
  - Vitamin D decreased [Unknown]
  - Sinus disorder [Unknown]
  - Multiple allergies [Unknown]

NARRATIVE: CASE EVENT DATE: 20210802
